FAERS Safety Report 7299927-5 (Version None)
Quarter: 2011Q1

REPORT INFORMATION
  Report Type: 
  Country: None (occurrence: None)
  Receive Date: 20110217
  Receipt Date: 20110207
  Transmission Date: 20110831
  Serious: Yes (Other)
  Sender: FDA-Public Use
  Company Number: US-BAYER-200937532NA

PATIENT
  Sex: Female

DRUGS (3)
  1. MIRENA [Suspect]
     Indication: ABDOMINAL PAIN LOWER
     Dosage: CONTINUOUS
     Route: 015
     Dates: start: 20090311
  2. MIRENA [Suspect]
  3. MIRENA [Suspect]
     Indication: MENORRHAGIA

REACTIONS (5)
  - DEVICE DISLOCATION [None]
  - VAGINAL HAEMORRHAGE [None]
  - WEIGHT INCREASED [None]
  - MENSTRUAL DISORDER [None]
  - MENSTRUATION IRREGULAR [None]
